FAERS Safety Report 4786134-0 (Version None)
Quarter: 2005Q3

REPORT INFORMATION
  Report Type: 
  Country: None (occurrence: None)
  Receive Date: 20050930
  Receipt Date: 20050303
  Transmission Date: 20060218
  Serious: No
  Sender: FDA-Public Use
  Company Number: 2005FR-00281

PATIENT
  Age: 55 Year
  Sex: Female

DRUGS (3)
  1. ASPIRIN [Suspect]
     Dosage: 300 MG ORAL
     Route: 048
  2. GLYCERYL TRINITRATE [Concomitant]
  3. DIAMORPHINE [Concomitant]

REACTIONS (6)
  - ARTERIOSPASM CORONARY [None]
  - ATRIOVENTRICULAR BLOCK [None]
  - CHEST PAIN [None]
  - DYSPNOEA [None]
  - MYOCARDIAL INFARCTION [None]
  - URTICARIA [None]
